FAERS Safety Report 9181964 (Version 2)
Quarter: 2013Q2

REPORT INFORMATION
  Report Type: Spontaneous
  Country: US (occurrence: None)
  Receive Date: 20120531
  Receipt Date: 20130130
  Transmission Date: 20140414
  Serious: Yes (Other)
  Sender: FDA-Public Use
  Company Number: US201201006879

PATIENT
  Age: 66 Year
  Sex: Female

DRUGS (15)
  1. BYETTA [Suspect]
     Route: 058
     Dates: start: 2006, end: 2008
  2. ELAVIL (AMITRIPTYLINE HYDROCHLORIDE) [Concomitant]
  3. CALCIUM (CALCIUM) [Concomitant]
  4. POTASSIUM CHLOROIDE (POTASSIUM CHLORIDE) [Concomitant]
  5. ESTROGEN (ESTRADIOL) [Concomitant]
  6. ULTRAM (TRAMADOL HYDROCHLORIDE) [Concomitant]
  7. NEXIUM (ESOMEPRAZOLE MAGNESIUM) [Concomitant]
  8. METFORMIN (METFORMIN) [Concomitant]
  9. CYMBALTA (DULOXETINE HYDROCHLORIDE) [Concomitant]
  10. HYDROCHLOROTHIAZIDE W/OLMESARTAN MEDOXOMIL (HYDROCHLOROTHIAZIDE, OLMESARTAN MEDOXOMIL) [Concomitant]
  11. CELEBREX (CELECOXIB) [Concomitant]
  12. JANUVIA (SITAGLIPTIN PHOSPHARTE) [Concomitant]
  13. JANUVIA (SITAGLIPTIN PHOSPHATE) [Concomitant]
  14. ADVIL [Concomitant]
  15. ALEVE (NAPROXEN SODIUM) [Concomitant]

REACTIONS (2)
  - Pancreatitis [None]
  - Pancreatitis acute [None]
